FAERS Safety Report 4900354-3 (Version None)
Quarter: 2006Q1

REPORT INFORMATION
  Report Type: 
  Country: None (occurrence: None)
  Receive Date: 20060203
  Receipt Date: 20051129
  Transmission Date: 20060701
  Serious: Yes (Hospitalization)
  Sender: FDA-Public Use
  Company Number: DE-GLAXOSMITHKLINE-D0048136A

PATIENT
  Age: 20 Year
  Sex: Male
  Weight: 85 kg

DRUGS (1)
  1. VIANI [Suspect]
     Indication: ASTHMA
     Dosage: 1BLS TWICE PER DAY
     Route: 055
     Dates: start: 20030101, end: 20050610

REACTIONS (1)
  - CONVULSION [None]
